FAERS Safety Report 5837039-5 (Version None)
Quarter: 2008Q3

REPORT INFORMATION
  Report Type: 
  Country: None (occurrence: None)
  Receive Date: 20080807
  Receipt Date: 20080318
  Transmission Date: 20090109
  Serious: No
  Sender: FDA-Public Use
  Company Number: US-BRISTOL-MYERS SQUIBB COMPANY-14119200

PATIENT
  Sex: Female

DRUGS (8)
  1. GLUCOVANCE [Suspect]
  2. BYETTA [Suspect]
     Dates: start: 20071129
  3. HUMALOG [Suspect]
     Dosage: HUMALOG 75/25
     Route: 058
     Dates: start: 20071129
  4. ACTOS [Suspect]
  5. JANUMET [Suspect]
     Dosage: PREVIOUSLY 100 MG QD
     Route: 048
  6. JANUVIA [Concomitant]
     Dosage: FORMULATION: 100MG TABS
     Route: 048
     Dates: start: 20070521, end: 20071213
  7. GLIMEPIRIDE [Concomitant]
  8. SULFONYLUREA [Concomitant]

REACTIONS (1)
  - HYPOGLYCAEMIA [None]
